FAERS Safety Report 8003734-5 (Version None)
Quarter: 2011Q4

REPORT INFORMATION
  Report Type: 
  Country: None (occurrence: None)
  Receive Date: 20111222
  Receipt Date: 20111213
  Transmission Date: 20120403
  Serious: Yes (Hospitalization, Other)
  Sender: FDA-Public Use
  Company Number: US-BAXTER-2011BH037371

PATIENT
  Sex: Male

DRUGS (3)
  1. EXTRANEAL [Suspect]
     Indication: PERITONEAL DIALYSIS
     Route: 033
  2. COUMADIN [Suspect]
     Indication: ATRIAL FIBRILLATION
     Route: 033
  3. DIANEAL [Suspect]
     Indication: PERITONEAL DIALYSIS

REACTIONS (4)
  - PERITONITIS BACTERIAL [None]
  - GASTROINTESTINAL HAEMORRHAGE [None]
  - PERITONEAL DIALYSIS COMPLICATION [None]
  - OESOPHAGEAL HAEMORRHAGE [None]
